FAERS Safety Report 25353186 (Version 1)
Quarter: 2025Q2

REPORT INFORMATION
  Report Type: Report from Study
  Country: CA (occurrence: CA)
  Receive Date: 20250523
  Receipt Date: 20250523
  Transmission Date: 20250717
  Serious: Yes (Other)
  Sender: FRESENIUS KABI
  Company Number: CA-FreseniusKabi-FK202506104

PATIENT
  Age: 67 Year
  Sex: Female

DRUGS (1)
  1. IDACIO [Suspect]
     Active Substance: ADALIMUMAB-AACF
     Indication: Rheumatoid arthritis
     Dosage: SUBCUTANEOUS (AUTOINJECTOR)?FORMULATION UNKNOWN
     Route: 058
     Dates: start: 20250123, end: 20250306

REACTIONS (4)
  - Squamous cell carcinoma [Unknown]
  - Erysipelas [Unknown]
  - Photosensitivity reaction [Unknown]
  - Cellulitis [Unknown]

NARRATIVE: CASE EVENT DATE: 20250201
